FAERS Safety Report 12290841 (Version 1)
Quarter: 2016Q2

REPORT INFORMATION
  Report Type: Spontaneous
  Country: NL (occurrence: NL)
  Receive Date: 20160421
  Receipt Date: 20160421
  Transmission Date: 20160815
  Serious: Yes (Other)
  Sender: FDA-Public Use
  Company Number: NL-TEVA-652655ISR

PATIENT
  Age: 72 Year
  Sex: Male

DRUGS (1)
  1. DOXYCYCLINE TABLET 100MG [Suspect]
     Active Substance: DOXYCYCLINE
     Indication: UPPER RESPIRATORY TRACT INFECTION
     Dosage: 100 MILLIGRAM DAILY;
     Route: 048

REACTIONS (3)
  - Dermatitis bullous [Unknown]
  - Dermatitis bullous [Recovering/Resolving]
  - Oral mucosal eruption [Unknown]
